FAERS Safety Report 6126268-1 (Version None)
Quarter: 2009Q1

REPORT INFORMATION
  Report Type: 
  Country: None (occurrence: None)
  Receive Date: 20090320
  Receipt Date: 20090316
  Transmission Date: 20090719
  Serious: Yes (Life-Threatening, Hospitalization)
  Sender: FDA-Public Use
  Company Number: PHHY2009JP08752

PATIENT
  Age: 85 Year
  Sex: Female

DRUGS (4)
  1. TEGRETOL [Suspect]
     Indication: TRIGEMINAL NEURALGIA
  2. FILGRASTIM [Concomitant]
  3. MEROPENEM [Concomitant]
  4. VALACYCLOVIR [Concomitant]

REACTIONS (6)
  - HYPOTENSION [None]
  - INFECTION [None]
  - NEUTROPHIL COUNT DECREASED [None]
  - PAIN [None]
  - PYREXIA [None]
  - SHOCK [None]
